FAERS Safety Report 8803859 (Version 2)
Quarter: 2012Q4

REPORT INFORMATION
  Report Type: 
  Country: FR (occurrence: FR)
  Receive Date: 20120923
  Receipt Date: 20121113
  Transmission Date: 20130627
  Serious: Yes (Hospitalization, Other)
  Sender: FDA-Public Use
  Company Number: PHHY2012FR081038

PATIENT
  Age: 40 Year
  Sex: Female

DRUGS (2)
  1. FTY 720 [Suspect]
     Dates: start: 20111213, end: 20111228
  2. FTY 720 [Suspect]
     Dates: start: 20120119

REACTIONS (14)
  - Grand mal convulsion [Unknown]
  - Electroencephalogram abnormal [Unknown]
  - Partial seizures [Unknown]
  - Aphasia [Unknown]
  - Asthenia [Unknown]
  - Multiple sclerosis relapse [Unknown]
  - Hypoaesthesia [Unknown]
  - Central nervous system lesion [Unknown]
  - Visual field defect [Not Recovered/Not Resolved]
  - Disturbance in attention [Unknown]
  - Hemianopia [Unknown]
  - Lymphocyte count decreased [Unknown]
  - CD4 lymphocytes decreased [Unknown]
  - CD8 lymphocytes decreased [Unknown]
